FAERS Safety Report 20691930 (Version 1)
Quarter: 2022Q2

REPORT INFORMATION
  Report Type: Spontaneous
  Country: FR (occurrence: None)
  Receive Date: 20220408
  Receipt Date: 20220408
  Transmission Date: 20220721
  Serious: Yes (Other)
  Sender: FDA-Public Use
  Company Number: FR-ROCHE-3064447

PATIENT
  Age: 51 Year
  Sex: Female
  Weight: 83 kg

DRUGS (6)
  1. BROMAZEPAM [Suspect]
     Active Substance: BROMAZEPAM
     Indication: Product used for unknown indication
     Route: 048
  2. CLONAZEPAM [Suspect]
     Active Substance: CLONAZEPAM
     Indication: Product used for unknown indication
     Dosage: 20 DROPS, DAILY
     Route: 048
  3. AMISULPRIDE [Concomitant]
     Active Substance: AMISULPRIDE
     Indication: Product used for unknown indication
     Route: 048
  4. CYAMEMAZINE [Concomitant]
     Active Substance: CYAMEMAZINE
     Indication: Product used for unknown indication
     Route: 048
  5. TOZINAMERAN [Concomitant]
     Active Substance: TOZINAMERAN
     Indication: Product used for unknown indication
     Route: 065
  6. PAROXETINE HYDROCHLORIDE [Concomitant]
     Active Substance: PAROXETINE HYDROCHLORIDE
     Indication: Product used for unknown indication
     Route: 065

REACTIONS (2)
  - Presyncope [Unknown]
  - Hot flush [Recovering/Resolving]

NARRATIVE: CASE EVENT DATE: 20220214
